FAERS Safety Report 7456347-8 (Version None)
Quarter: 2011Q2

REPORT INFORMATION
  Report Type: 
  Country: None (occurrence: None)
  Receive Date: 20110503
  Receipt Date: 20110401
  Transmission Date: 20111010
  Serious: Yes (Hospitalization, Other)
  Sender: FDA-Public Use
  Company Number: US-BAYER-200943651NA

PATIENT
  Age: 43 Year
  Sex: Female
  Weight: 90.703 kg

DRUGS (4)
  1. YAZ [Suspect]
     Indication: PRODUCT USED FOR UNKNOWN INDICATION
     Route: 048
     Dates: start: 20070901, end: 20090901
  2. MULTI-VITAMINS [Concomitant]
  3. METHYLPREDNISOLONE [Concomitant]
  4. KETOROLAC TROMETHAMINE [Concomitant]
     Dosage: 20 MG/ML, UNK
     Route: 030

REACTIONS (2)
  - MYOCARDIAL INFARCTION [None]
  - CARDIAC DISORDER [None]
